FAERS Safety Report 6086029-9 (Version None)
Quarter: 2009Q1

REPORT INFORMATION
  Report Type: 
  Country: None (occurrence: None)
  Receive Date: 20090220
  Receipt Date: 20090209
  Transmission Date: 20090719
  Serious: Yes (Hospitalization)
  Sender: FDA-Public Use
  Company Number: FR-AMGEN-UK094326

PATIENT
  Age: 48 Year
  Sex: Female

DRUGS (3)
  1. KINERET [Suspect]
     Indication: RHEUMATOID ARTHRITIS
     Route: 058
  2. METHOTREXATE [Concomitant]
     Route: 065
  3. HYDROXYCHLOROQUINE SULFATE [Concomitant]
     Route: 065

REACTIONS (1)
  - EOSINOPHILIC CELLULITIS [None]
